FAERS Safety Report 4816286-5 (Version None)
Quarter: 2005Q4

REPORT INFORMATION
  Report Type: 
  Country: None (occurrence: None)
  Receive Date: 20051028
  Receipt Date: 20051021
  Transmission Date: 20060501
  Serious: Yes (Disabling, Other)
  Sender: FDA-Public Use
  Company Number: 2005138424

PATIENT
  Sex: Female

DRUGS (11)
  1. ANTIVERT [Suspect]
     Indication: INNER EAR DISORDER
     Dosage: (25 MG, AS NECESSARY), ORAL
     Route: 048
  2. LIPITOR [Suspect]
     Indication: BLOOD CHOLESTEROL INCREASED
     Dosage: 20 MG (20 MG, 1 IN 1 D), ORAL
     Route: 048
  3. GLUCOTROL XL [Suspect]
     Indication: DIABETES MELLITUS
     Dosage: 5 MG (5 MG, 1 IN 1 D)
     Dates: start: 20020205
  4. EFFEXOR - SLOW RELEASE (VENLAFAXINE HYDROCHLORIDE) [Concomitant]
  5. DIOVAN [Concomitant]
  6. XANAX [Concomitant]
  7. IMIPRAMINE [Concomitant]
  8. STRATTERA [Concomitant]
  9. ACIPHEX [Concomitant]
  10. FLEXERIL [Concomitant]
  11. ALL OTHER THERAPEUTIC PRODUCTS (ALL OTHER THERAPEUTIC PRODUCTS) [Concomitant]

REACTIONS (14)
  - ANXIETY [None]
  - BLOOD CHOLESTEROL INCREASED [None]
  - BLOOD GLUCOSE INCREASED [None]
  - CYSTITIS [None]
  - DIABETES MELLITUS [None]
  - DYSPNOEA [None]
  - FEELING ABNORMAL [None]
  - HEART RATE INCREASED [None]
  - INSULIN RESISTANCE [None]
  - MORTON'S NEUROMA [None]
  - OSTEOARTHRITIS [None]
  - PANIC ATTACK [None]
  - PYURIA [None]
  - TREATMENT NONCOMPLIANCE [None]
